FAERS Safety Report 23577097 (Version 8)
Quarter: 2024Q2

REPORT INFORMATION
  Report Type: Spontaneous
  Country: FR (occurrence: FR)
  Receive Date: 20240228
  Receipt Date: 20240604
  Transmission Date: 20240716
  Serious: Yes (Other)
  Sender: FDA-Public Use
  Company Number: FR-BRISTOL-MYERS SQUIBB COMPANY-2024-001095

PATIENT
  Age: 64 Year
  Sex: Male

DRUGS (3)
  1. OPDIVO [Suspect]
     Active Substance: NIVOLUMAB
     Indication: Renal disorder
  2. YERVOY [Suspect]
     Active Substance: IPILIMUMAB
     Indication: Renal disorder
  3. COUMADIN [Suspect]
     Active Substance: WARFARIN SODIUM
     Indication: Product used for unknown indication

REACTIONS (36)
  - Rash maculo-papular [Recovered/Resolved]
  - Decreased appetite [Recovered/Resolved]
  - Weight decreased [Recovered/Resolved]
  - Myalgia [Recovered/Resolved]
  - Dry mouth [Recovering/Resolving]
  - Insomnia [Recovering/Resolving]
  - Hyperhidrosis [Recovered/Resolved]
  - Chills [Recovered/Resolved]
  - Anxiety [Recovering/Resolving]
  - Peripheral sensory neuropathy [Recovering/Resolving]
  - Dry skin [Recovering/Resolving]
  - Palpitations [Not Recovered/Not Resolved]
  - Pruritus [Recovering/Resolving]
  - Cough [Not Recovered/Not Resolved]
  - Fatigue [Not Recovered/Not Resolved]
  - Dyspnoea [Not Recovered/Not Resolved]
  - Palmar-plantar erythrodysaesthesia syndrome [Recovered/Resolved]
  - Dysgeusia [Recovered/Resolved]
  - Vision blurred [Recovered/Resolved]
  - Dizziness [Recovered/Resolved]
  - Constipation [Recovered/Resolved]
  - Hot flush [Recovered/Resolved]
  - Memory impairment [Unknown]
  - Dysaesthesia [Recovered/Resolved]
  - Confusional state [Recovered/Resolved]
  - Erectile dysfunction [Unknown]
  - Gastrooesophageal reflux disease [Recovered/Resolved]
  - Epistaxis [Not Recovered/Not Resolved]
  - Discomfort [Unknown]
  - Depression [Recovering/Resolving]
  - Malaise [Recovered/Resolved]
  - Photosensitivity reaction [Unknown]
  - Ascites [Recovered/Resolved]
  - Haemorrhage [Not Recovered/Not Resolved]
  - Tinnitus [Not Recovered/Not Resolved]
  - Abdominal pain [Unknown]
